FAERS Safety Report 7156062-4 (Version None)
Quarter: 2010Q4

REPORT INFORMATION
  Report Type: 
  Country: None (occurrence: None)
  Receive Date: 20101123
  Receipt Date: 20100804
  Transmission Date: 20110411
  Serious: Yes (Hospitalization, Other)
  Sender: FDA-Public Use
  Company Number: 8046305

PATIENT
  Sex: Female
  Weight: 55.8 kg

DRUGS (12)
  1. CERTOLIZUMAB PEGOL [Suspect]
     Indication: CROHN'S DISEASE
     Dosage: (400 MG 1X/MONTH SUBCUTANEOUS), (SUBCUTANEOUS)
     Route: 058
     Dates: start: 20090205
  2. CERTOLIZUMAB PEGOL [Suspect]
  3. CERTOLIZUMAB PEGOL [Suspect]
  4. CELEXA [Concomitant]
  5. FISH OIL [Concomitant]
  6. IRON [Concomitant]
  7. MULTI-VITAMINS [Concomitant]
  8. ASCORBIC ACID [Concomitant]
  9. VITAMIN D [Concomitant]
  10. CLONOPIN [Concomitant]
  11. CALCIUM [Concomitant]
  12. PREDNISONE [Concomitant]

REACTIONS (3)
  - CROHN'S DISEASE [None]
  - FATIGUE [None]
  - PALLOR [None]
